FAERS Safety Report 17889612 (Version 1)
Quarter: 2020Q2

REPORT INFORMATION
  Report Type: Spontaneous
  Country: US (occurrence: US)
  Receive Date: 20200612
  Receipt Date: 20200612
  Transmission Date: 20200714
  Serious: Yes (Hospitalization)
  Sender: FDA-Public Use
  Company Number: US-BAYER-2018-032869

PATIENT
  Age: 77 Year
  Sex: Female

DRUGS (6)
  1. XARELTO [Suspect]
     Active Substance: RIVAROXABAN
     Indication: KNEE ARTHROPLASTY
  2. ASPIRIN (CARDIO) [Suspect]
     Active Substance: ASPIRIN
     Indication: MYOCARDIAL INFARCTION
     Dosage: VARYING DOSES OF 81 MG AND 325 MG
     Route: 048
  3. XARELTO [Suspect]
     Active Substance: RIVAROXABAN
     Indication: CEREBROVASCULAR ACCIDENT PROPHYLAXIS
     Dosage: 20 MG, UNK
     Route: 048
     Dates: end: 201604
  4. ASPIRIN (CARDIO) [Suspect]
     Active Substance: ASPIRIN
     Indication: MYOCARDIAL INFARCTION
  5. ASPIRIN (CARDIO) [Suspect]
     Active Substance: ASPIRIN
     Indication: CEREBROVASCULAR ACCIDENT PROPHYLAXIS
  6. XARELTO [Suspect]
     Active Substance: RIVAROXABAN
     Indication: ATRIAL FIBRILLATION
     Dosage: 20 MG, UNK
     Route: 048
     Dates: start: 20160127, end: 201602

REACTIONS (1)
  - Gastric ulcer haemorrhage [Unknown]

NARRATIVE: CASE EVENT DATE: 20160220
